FAERS Safety Report 13568397 (Version 1)
Quarter: 2017Q2

REPORT INFORMATION
  Report Type: Spontaneous
  Country: US (occurrence: US)
  Receive Date: 20170522
  Receipt Date: 20170522
  Transmission Date: 20170830
  Serious: No
  Sender: FDA-Public Use
  Company Number: None

PATIENT
  Age: 50 Year
  Sex: Female

DRUGS (1)
  1. ORENCIA [Suspect]
     Active Substance: ABATACEPT
     Indication: RHEUMATOID ARTHRITIS
     Dosage: DATES OF USE - 5/7/17, 5/14/17, 5/22/17?DOSE AMOUNT - 125 MG/ML
     Route: 058
     Dates: start: 20170507, end: 20170522

REACTIONS (1)
  - Ear pain [None]

NARRATIVE: CASE EVENT DATE: 20170507
